FAERS Safety Report 23311072 (Version 4)
Quarter: 2024Q2

REPORT INFORMATION
  Report Type: Spontaneous
  Country: US (occurrence: US)
  Receive Date: 20231218
  Receipt Date: 20240628
  Transmission Date: 20240716
  Serious: No
  Sender: FDA-Public Use
  Company Number: US-ABBVIE-5542234

PATIENT
  Age: 68 Year
  Sex: Female
  Weight: 43 kg

DRUGS (7)
  1. ALPHAGAN P [Suspect]
     Active Substance: BRIMONIDINE TARTRATE
     Indication: Glaucoma
     Dosage: TIME INTERVAL: 0.33333333 DAYS: DRUG STRENGTH 0.15 PERCENT
     Route: 047
     Dates: start: 2023, end: 20231204
  2. ALPHAGAN P [Suspect]
     Active Substance: BRIMONIDINE TARTRATE
     Indication: Glaucoma
     Dosage: TIME INTERVAL: 0.33333333 DAYS: DRUG STRENGTH 0.1 PERCENT
     Route: 047
     Dates: start: 20231205, end: 20231205
  3. ALPHAGAN P [Suspect]
     Active Substance: BRIMONIDINE TARTRATE
     Dosage: DRUG STRENGTH 0.1 PERCENT
     Route: 047
     Dates: start: 20231206
  4. REFRESH RELIEVA PF [Suspect]
     Active Substance: CARBOXYMETHYLCELLULOSE SODIUM\GLYCERIN
     Indication: Dry eye
     Route: 047
     Dates: start: 2023
  5. REFRESH RELIEVA PF [Suspect]
     Active Substance: CARBOXYMETHYLCELLULOSE SODIUM\GLYCERIN
     Route: 047
  6. SYSTANE (HYPROMELLOSE 2910 (4000 MPA.S)) [Concomitant]
     Active Substance: HYPROMELLOSE 2910 (4000 MPA.S)
     Indication: Dry eye
  7. ZIOPTAN [Concomitant]
     Active Substance: TAFLUPROST
     Indication: Glaucoma

REACTIONS (7)
  - Eye irritation [Unknown]
  - Vision blurred [Not Recovered/Not Resolved]
  - Dry eye [Not Recovered/Not Resolved]
  - Asthenopia [Not Recovered/Not Resolved]
  - Eye pain [Unknown]
  - Product dispensing error [Not Recovered/Not Resolved]
  - Depression [Not Recovered/Not Resolved]

NARRATIVE: CASE EVENT DATE: 20231201
